FAERS Safety Report 9760575 (Version 1)
Quarter: 2013Q4

REPORT INFORMATION
  Report Type: Spontaneous
  Country: US (occurrence: US)
  Receive Date: 20131216
  Receipt Date: 20131216
  Transmission Date: 20140711
  Serious: No
  Sender: FDA-Public Use
  Company Number: US-PFIZER INC-2013357939

PATIENT
  Sex: Male

DRUGS (4)
  1. EFFEXOR XR [Suspect]
     Dosage: 150 MG, 3X/DAY
  2. EFFEXOR XR [Suspect]
     Dosage: UNK (TWO PER DAY)
  3. LORAZEPAM [Suspect]
     Dosage: UNK
  4. VENLAFAXINE HCL [Suspect]
     Dosage: UNK

REACTIONS (2)
  - Drug ineffective [Unknown]
  - Anxiety [Unknown]
